FAERS Safety Report 8789728 (Version 1)
Quarter: 2012Q4

REPORT INFORMATION
  Report Type: Spontaneous
  Country: US (occurrence: None)
  Receive Date: 20120911
  Receipt Date: 20120911
  Transmission Date: 20130627
  Serious: Yes (Hospitalization)
  Sender: FDA-Public Use
  Company Number: None

PATIENT
  Age: 65 Year
  Sex: Female
  Weight: 81 kg

DRUGS (6)
  1. WARFARIN [Suspect]
     Indication: ATRIAL FIBRILLATION
     Route: 048
  2. VITAMIN D [Concomitant]
  3. TRIAMETERENE/HCTZ [Concomitant]
  4. LEVOTHYROXINE [Concomitant]
  5. LISINOPRIL [Concomitant]
  6. METOPROLOL XL [Concomitant]

REACTIONS (5)
  - Contusion [None]
  - Epistaxis [None]
  - International normalised ratio increased [None]
  - Gastritis [None]
  - Alcoholic liver disease [None]
